FAERS Safety Report 5250970-7 (Version None)
Quarter: 2007Q1

REPORT INFORMATION
  Report Type: 
  Country: None (occurrence: None)
  Receive Date: 20070228
  Receipt Date: 20060731
  Transmission Date: 20070707
  Serious: No
  Sender: FDA-Public Use
  Company Number: US-GLAXOSMITHKLINE-A0614810A

PATIENT
  Age: 43 Year
  Sex: Female

DRUGS (1)
  1. LAMICTAL [Suspect]
     Indication: DRUG USE FOR UNKNOWN INDICATION
     Dosage: 100MG AT NIGHT

REACTIONS (6)
  - ANGIOPATHY [None]
  - ARTHRALGIA [None]
  - FEELING HOT [None]
  - PAIN IN EXTREMITY [None]
  - SWELLING [None]
  - VARICOSE VEIN [None]
